FAERS Safety Report 9727343 (Version 3)
Quarter: 2014Q2

REPORT INFORMATION
  Report Type: Report from Study
  Country: JP (occurrence: JP)
  Receive Date: 20131203
  Receipt Date: 20140603
  Transmission Date: 20141212
  Serious: Yes (Life-Threatening, Hospitalization)
  Sender: FDA-Public Use
  Company Number: JP-SA-2013SA124722

PATIENT
  Age: 3 Year
  Sex: Female
  Weight: 13.55 kg

DRUGS (21)
  1. THYMOGLOBULINE [Suspect]
     Indication: BONE MARROW CONDITIONING REGIMEN
     Dosage: OVER 90 MINUTES; INTENDED DOSE:34 MG
     Route: 042
     Dates: start: 20120220, end: 20120220
  2. FLUDARA [Suspect]
     Indication: BONE MARROW CONDITIONING REGIMEN
     Route: 065
     Dates: start: 20120217, end: 20120221
  3. BUSULFEX [Suspect]
     Indication: BONE MARROW CONDITIONING REGIMEN
     Route: 065
     Dates: start: 20120214, end: 20120216
  4. ALKERAN [Suspect]
     Indication: BONE MARROW CONDITIONING REGIMEN
     Route: 065
     Dates: start: 20120216, end: 20120217
  5. SULBACILLIN [Concomitant]
     Indication: INFECTION PROPHYLAXIS
     Dates: start: 20120214, end: 20120302
  6. FRAGMIN [Concomitant]
     Indication: PROPHYLAXIS
     Dates: start: 20120214, end: 20120324
  7. ONDANSETRON [Concomitant]
     Indication: PROPHYLAXIS OF NAUSEA AND VOMITING
     Dates: start: 20120212, end: 20120224
  8. LASIX [Concomitant]
     Indication: OLIGURIA
     Dates: start: 20120220, end: 20120327
  9. ACICLOVIR [Concomitant]
     Indication: ANTIVIRAL PROPHYLAXIS
     Dates: start: 20120216, end: 20120329
  10. SANDIMMUNE [Concomitant]
     Indication: PROPHYLAXIS AGAINST GRAFT VERSUS HOST DISEASE
     Dates: start: 20120222, end: 20120322
  11. METHOTREXATE [Concomitant]
     Indication: PROPHYLAXIS AGAINST GRAFT VERSUS HOST DISEASE
     Dates: start: 20120224, end: 20120305
  12. NEU-UP [Concomitant]
     Indication: NEUTROPENIA
     Dates: start: 20120228, end: 20120319
  13. NEORAL [Concomitant]
     Indication: PROPHYLAXIS AGAINST GRAFT VERSUS HOST DISEASE
     Dates: start: 20120321, end: 20120321
  14. PROGRAF [Concomitant]
     Indication: PROPHYLAXIS AGAINST GRAFT VERSUS HOST DISEASE
     Dates: start: 20120321, end: 20120423
  15. PROGRAF [Concomitant]
     Indication: PROPHYLAXIS AGAINST GRAFT VERSUS HOST DISEASE
     Dates: start: 20120424, end: 20120820
  16. BAKTAR [Concomitant]
     Indication: PROPHYLAXIS
     Dates: start: 20120324, end: 20120820
  17. ITRIZOLE [Concomitant]
     Indication: ANTIFUNGAL PROPHYLAXIS
     Dates: end: 20120305
  18. ITRIZOLE [Concomitant]
     Indication: BRONCHOPULMONARY ASPERGILLOSIS
     Dates: end: 20120305
  19. POLYMYXIN B [Concomitant]
     Indication: PROPHYLAXIS
     Dates: start: 20120307, end: 20120312
  20. CALONAL [Concomitant]
     Indication: PROPHYLAXIS
     Dates: start: 20120220, end: 20120221
  21. VENOGLOBULIN-IH [Concomitant]
     Indication: ANTIVIRAL PROPHYLAXIS
     Dates: start: 20120223, end: 20120531

REACTIONS (11)
  - Hypersensitivity [Unknown]
  - Cough [Unknown]
  - Wheezing [Unknown]
  - Mood altered [Unknown]
  - Oxygen saturation decreased [Unknown]
  - Vomiting [Unknown]
  - Stomatitis [Recovering/Resolving]
  - Herpes zoster [Recovered/Resolved]
  - Febrile neutropenia [Recovering/Resolving]
  - Skin infection [Recovering/Resolving]
  - Acute graft versus host disease [Recovering/Resolving]
